FAERS Safety Report 7309104-7 (Version None)
Quarter: 2011Q1

REPORT INFORMATION
  Report Type: 
  Country: None (occurrence: None)
  Receive Date: 20110223
  Receipt Date: 20110208
  Transmission Date: 20110831
  Serious: Yes (Other)
  Sender: FDA-Public Use
  Company Number: CA-BAYER-2011-005689

PATIENT
  Sex: Male
  Weight: 70.29 kg

DRUGS (3)
  1. ALEVE [Suspect]
  2. TYLENOL (CAPLET) [Concomitant]
  3. EXTAVIA [Suspect]
     Indication: RELAPSING-REMITTING MULTIPLE SCLEROSIS
     Dosage: 8 MIU, QOD
     Route: 058
     Dates: start: 20101222

REACTIONS (4)
  - APHASIA [None]
  - TONGUE DISORDER [None]
  - DYSARTHRIA [None]
  - SPEECH DISORDER [None]
